FAERS Safety Report 4426446-3 (Version None)
Quarter: 2004Q3

REPORT INFORMATION
  Report Type: 
  Country: None (occurrence: None)
  Receive Date: 20040815
  Receipt Date: 20040806
  Transmission Date: 20050211
  Serious: Yes (Other)
  Sender: FDA-Public Use
  Company Number: GB-MERCK-0408GBR00080

PATIENT

DRUGS (2)
  1. ZETIA [Suspect]
     Route: 048
  2. STATIN (UNSPECIFIED) [Concomitant]
     Route: 065

REACTIONS (2)
  - HEPATIC ENZYME INCREASED [None]
  - LABORATORY TEST [None]
